FAERS Safety Report 6584271-1 (Version None)
Quarter: 2010Q1

REPORT INFORMATION
  Report Type: 
  Country: None (occurrence: None)
  Receive Date: 20100216
  Receipt Date: 20100111
  Transmission Date: 20100710
  Serious: No
  Sender: FDA-Public Use
  Company Number: US-ABBOTT-10P-163-0618639-00

PATIENT
  Sex: Male
  Weight: 71.278 kg

DRUGS (4)
  1. SIMCOR [Suspect]
     Indication: BLOOD CHOLESTEROL INCREASED
     Dosage: 500/20MG BEDTIME
     Route: 048
     Dates: start: 20100104, end: 20100109
  2. SIMCOR [Suspect]
     Dosage: (2) 500/20 DOSES AT BEDTIME
     Dates: start: 20100110
  3. ASPIRIN [Concomitant]
     Indication: DRUG USE FOR UNKNOWN INDICATION
     Route: 048
  4. AZOR [Concomitant]
     Indication: DRUG USE FOR UNKNOWN INDICATION
     Route: 048

REACTIONS (1)
  - FORMICATION [None]
